FAERS Safety Report 22044312 (Version 1)
Quarter: 2023Q1

REPORT INFORMATION
  Report Type: Spontaneous
  Country: US (occurrence: US)
  Receive Date: 20230228
  Receipt Date: 20230228
  Transmission Date: 20230417
  Serious: Yes (Hospitalization)
  Sender: FDA-Public Use
  Company Number: US-MYLANLABS-2023M1020177

PATIENT
  Age: 51 Year
  Sex: Male

DRUGS (12)
  1. PREGABALIN [Suspect]
     Active Substance: PREGABALIN
     Indication: Paroxysmal sympathetic hyperactivity
     Dosage: UNK
     Route: 065
  2. HALOPERIDOL [Suspect]
     Active Substance: HALOPERIDOL
     Indication: Paroxysmal sympathetic hyperactivity
     Dosage: UNK, BOLUSES
     Route: 065
  3. DEXMEDETOMIDINE [Suspect]
     Active Substance: DEXMEDETOMIDINE
     Indication: Sedative therapy
     Dosage: UNK
     Route: 065
  4. DEXMEDETOMIDINE [Suspect]
     Active Substance: DEXMEDETOMIDINE
     Indication: Paroxysmal sympathetic hyperactivity
     Dosage: UNK,STARTED ON ADMISSION DAY 39.
     Route: 065
  5. PROPOFOL [Suspect]
     Active Substance: PROPOFOL
     Indication: Sedative therapy
     Dosage: UNK
     Route: 065
  6. PROPOFOL [Suspect]
     Active Substance: PROPOFOL
     Indication: Paroxysmal sympathetic hyperactivity
     Dosage: UNK,BOLUSES
     Route: 065
  7. HYDROMORPHONE [Suspect]
     Active Substance: HYDROMORPHONE
     Indication: Paroxysmal sympathetic hyperactivity
     Dosage: UNK
     Route: 065
  8. HYDROMORPHONE [Suspect]
     Active Substance: HYDROMORPHONE
     Indication: Sedative therapy
     Dosage: UNK,BOLUSES
     Route: 065
  9. PHENOBARBITAL [Suspect]
     Active Substance: PHENOBARBITAL
     Indication: Paroxysmal sympathetic hyperactivity
     Dosage: UNK
     Route: 065
  10. MIDAZOLAM [Concomitant]
     Active Substance: MIDAZOLAM
     Indication: Sedative therapy
     Dosage: UNK
     Route: 065
  11. GUANFACINE [Concomitant]
     Active Substance: GUANFACINE
     Indication: Paroxysmal sympathetic hyperactivity
     Dosage: 1.5 MILLIGRAM, TID, THREE TIMES DAILY
     Route: 065
  12. VALPROIC ACID [Concomitant]
     Active Substance: VALPROIC ACID
     Indication: Paroxysmal sympathetic hyperactivity
     Dosage: 1000 MILLIGRAM
     Route: 065

REACTIONS (1)
  - Drug ineffective [Unknown]
